FAERS Safety Report 6313189-4 (Version None)
Quarter: 2009Q3

REPORT INFORMATION
  Report Type: 
  Country: None (occurrence: None)
  Receive Date: 20090818
  Receipt Date: 20090810
  Transmission Date: 20100115
  Serious: Yes (Hospitalization)
  Sender: FDA-Public Use
  Company Number: PHHY2008DK29929

PATIENT
  Sex: Female
  Weight: 44 kg

DRUGS (10)
  1. ACLASTA [Suspect]
     Indication: OSTEOPOROSIS
     Dosage: 0.05 MG/ML; 1 INFUSION
     Route: 042
     Dates: start: 20081125
  2. FEM-MONO [Concomitant]
     Dosage: 60 MG, QD
  3. MANDOLGIN [Concomitant]
     Dosage: 100 MG, QD
  4. PINEX [Concomitant]
     Indication: PAIN
     Dosage: 500 MG, Q6H
  5. ASPIRIN [Concomitant]
     Indication: THROMBOSIS
     Dosage: 150 MG, QD
  6. VERAPAMIL [Concomitant]
     Dosage: 240 MG, QD
  7. ZOLPIDEM [Concomitant]
     Dosage: 10 MG, UNK
  8. CALCIUM [Concomitant]
     Dosage: 2 TIMES DAILY
  9. NULYTELY [Concomitant]
     Indication: CONSTIPATION
     Route: 048
  10. VITAMIN D [Concomitant]

REACTIONS (4)
  - CHILLS [None]
  - HYPERPARATHYROIDISM SECONDARY [None]
  - HYPOCALCAEMIA [None]
  - MALAISE [None]
